FAERS Safety Report 18122275 (Version 1)
Quarter: 2020Q3

REPORT INFORMATION
  Report Type: Spontaneous
  Country: US (occurrence: US)
  Receive Date: 20200807
  Receipt Date: 20200807
  Transmission Date: 20201103
  Serious: No
  Sender: FDA-Public Use
  Company Number: US-CADILA HEALTHCARE LIMITED-US-ZYDUS-050079

PATIENT
  Sex: Female

DRUGS (2)
  1. METFORMIN [Concomitant]
     Active Substance: METFORMIN HYDROCHLORIDE
     Dosage: UNK
  2. GLIPIZIDE 5 MILIGRAM TABLET EXTENDED RELEASE [Suspect]
     Active Substance: GLIPIZIDE

REACTIONS (4)
  - Drug ineffective [Unknown]
  - Nausea [Unknown]
  - Nervousness [Unknown]
  - Feeling abnormal [Unknown]
